FAERS Safety Report 8773516 (Version 2)
Quarter: 2012Q4

REPORT INFORMATION
  Report Type: Report from Study
  Country: JP (occurrence: JP)
  Receive Date: 20120907
  Receipt Date: 20121008
  Transmission Date: 20130627
  Serious: Yes (Hospitalization, Other)
  Sender: FDA-Public Use
  Company Number: JP-ASTELLAS-2012US007612

PATIENT
  Age: 69 Year
  Sex: Male

DRUGS (15)
  1. ERLOTINIB TABLET [Suspect]
     Indication: ADENOCARCINOMA PANCREAS
     Dosage: 100 mg, UID/QD
     Route: 048
     Dates: start: 20120510, end: 20120619
  2. ERLOTINIB TABLET [Suspect]
     Dosage: 100 mg, UID/QD
     Route: 048
     Dates: start: 20120711
  3. GEMCITABINE [Suspect]
     Indication: ADENOCARCINOMA PANCREAS
     Dosage: 1000 mg/m2, Weekly
     Route: 041
     Dates: start: 20120510, end: 20120516
  4. GEMCITABINE [Suspect]
     Dosage: 800 mg/m2, UID/QD
     Route: 041
     Dates: start: 20120530, end: 20120530
  5. GEMCITABINE [Suspect]
     Dosage: 800 mg/m2, UID/QD
     Route: 041
     Dates: start: 20120613, end: 20120613
  6. GEMCITABINE [Suspect]
     Dosage: 600 mg/m2, UID/QD
     Route: 041
     Dates: start: 20120711
  7. LOXONIN [Concomitant]
     Indication: ADENOCARCINOMA PANCREAS
     Dosage: 180 mg, UID/QD
     Route: 048
     Dates: start: 20120425
  8. LANSOPRAZOLE [Concomitant]
     Indication: PROPHYLAXIS
     Dosage: 15 mg, UID/QD
     Route: 048
     Dates: start: 20120425
  9. VOLTAREN                           /00372302/ [Concomitant]
     Indication: CANCER PAIN
     Dosage: 50 mg, prn
     Route: 054
  10. OXYCONTIN [Concomitant]
     Indication: ADENOCARCINOMA PANCREAS
     Dosage: 10 mg, UID/QD
     Route: 048
     Dates: start: 20120504
  11. OXINORM                            /00045603/ [Concomitant]
     Indication: CANCER PAIN
     Dosage: 2.5 mg, prn
     Route: 048
     Dates: start: 20120504
  12. MAGLAX [Concomitant]
     Indication: PROPHYLAXIS
     Dosage: 990 mg, UID/QD
     Route: 048
     Dates: start: 20120504
  13. NOVAMIN                            /00391002/ [Concomitant]
     Indication: NAUSEA
     Dosage: 5 mg, prn
     Route: 048
     Dates: start: 20120504
  14. URIEF [Concomitant]
     Indication: PRODUCT USED FOR UNKNOWN INDICATION
     Dosage: 8 mg, UID/QD
     Route: 048
  15. DUTASTERIDE [Concomitant]
     Indication: PRODUCT USED FOR UNKNOWN INDICATION
     Dosage: 0.5 mg, UID/QD
     Route: 048

REACTIONS (10)
  - Decreased appetite [Unknown]
  - Nausea [Recovering/Resolving]
  - Haemorrhoidal haemorrhage [Recovered/Resolved]
  - Malaise [Recovered/Resolved]
  - Dermatitis acneiform [Not Recovered/Not Resolved]
  - Dry skin [Not Recovered/Not Resolved]
  - Pyrexia [Recovered/Resolved]
  - Bacterial infection [Recovered/Resolved]
  - Melaena [Recovered/Resolved]
  - Platelet count decreased [Unknown]
